FAERS Safety Report 4696485-6 (Version None)
Quarter: 2005Q2

REPORT INFORMATION
  Report Type: 
  Country: None (occurrence: None)
  Receive Date: 20050608
  Receipt Date: 20040823
  Transmission Date: 20051028
  Serious: Yes (Hospitalization)
  Sender: FDA-Public Use
  Company Number: A03200402959

PATIENT
  Age: 48 Year
  Sex: Female

DRUGS (4)
  1. ELOXATIN [Suspect]
     Indication: COLON CANCER METASTATIC
     Dosage: (PARTIALLY ILLEGIBLE) MG Q2W - INTRAVENOUS NOS
     Route: 042
     Dates: start: 20040825, end: 20040825
  2. LEUCOVORIN [Concomitant]
  3. DOLASETRON [Concomitant]
  4. DEXAMETHASONE [Concomitant]

REACTIONS (5)
  - INJECTION SITE ABSCESS [None]
  - INJECTION SITE CELLULITIS [None]
  - INJECTION SITE ERYTHEMA [None]
  - INJECTION SITE EXTRAVASATION [None]
  - INJECTION SITE PAIN [None]
